FAERS Safety Report 5574262-1 (Version None)
Quarter: 2007Q4

REPORT INFORMATION
  Report Type: 
  Country: None (occurrence: None)
  Receive Date: 20071219
  Receipt Date: 20071210
  Transmission Date: 20080405
  Serious: No
  Sender: FDA-Public Use
  Company Number: 20074367

PATIENT
  Sex: Male

DRUGS (1)
  1. LIORESAL [Suspect]
     Indication: MUSCLE SPASTICITY
     Dosage: 70 MCG, DAILY, INTRATHECAL
     Route: 037
     Dates: start: 20070801

REACTIONS (2)
  - TOOTH DISCOLOURATION [None]
  - TOOTH LOSS [None]
